FAERS Safety Report 20565816 (Version 1)
Quarter: 2022Q1

REPORT INFORMATION
  Report Type: Spontaneous
  Country: US (occurrence: None)
  Receive Date: 20220307
  Receipt Date: 20220307
  Transmission Date: 20220423
  Serious: Yes (Life-Threatening)
  Sender: FDA-Public Use
  Company Number: None

PATIENT
  Age: 77 Year
  Sex: Male
  Weight: 100.6 kg

DRUGS (1)
  1. LUMASON [Suspect]
     Active Substance: SULFUR HEXAFLUORIDE
     Indication: Ultrasound scan
     Dosage: OTHER FREQUENCY : ONCE;?
     Route: 040
     Dates: start: 20220301, end: 20220301

REACTIONS (5)
  - Dizziness [None]
  - Dyspnoea [None]
  - Hypoxia [None]
  - Hypotension [None]
  - Reaction to azo-dyes [None]

NARRATIVE: CASE EVENT DATE: 20220301
